FAERS Safety Report 12722703 (Version 1)
Quarter: 2016Q3

REPORT INFORMATION
  Report Type: Other
  Country: TW (occurrence: TW)
  Receive Date: 20160907
  Receipt Date: 20160907
  Transmission Date: 20161109
  Serious: Yes (Hospitalization, Other)
  Sender: FDA-Public Use
  Company Number: TW-UNITED THERAPEUTICS CORP.-UTC-046477

PATIENT
  Sex: Female

DRUGS (1)
  1. REMODULIN [Suspect]
     Active Substance: TREPROSTINIL
     Indication: PULMONARY ARTERIAL HYPERTENSION
     Dosage: 0.006 UG/KG/MIN
     Route: 041
     Dates: start: 20140307, end: 20140327

REACTIONS (5)
  - Oliguria [Unknown]
  - Pyrexia [Recovered/Resolved]
  - Generalised oedema [Unknown]
  - Injection site erythema [Unknown]
  - Oedema peripheral [Unknown]

NARRATIVE: CASE EVENT DATE: 20140315
